FAERS Safety Report 6164824-5 (Version None)
Quarter: 2009Q2

REPORT INFORMATION
  Report Type: 
  Country: None (occurrence: None)
  Receive Date: 20090423
  Receipt Date: 20090417
  Transmission Date: 20091009
  Serious: Yes (Hospitalization)
  Sender: FDA-Public Use
  Company Number: PHHY2009DK10967

PATIENT
  Sex: Male

DRUGS (9)
  1. RASILEZ [Suspect]
     Indication: HYPERTENSION
     Dosage: 150 MG DAILY
     Route: 048
     Dates: start: 20080812, end: 20090306
  2. CORODIL [Interacting]
     Dosage: 20 MG DAILY
     Dates: start: 20011109
  3. CENTYL MITE W/POTASSIUM CHLORIDE [Concomitant]
  4. DAONIL [Concomitant]
  5. HJERTEALBYL [Concomitant]
  6. MODAFINIL [Concomitant]
     Indication: NARCOLEPSY
     Dosage: 200 MG DAILY
     Dates: start: 20030219
  7. SITAGLIPTIN [Concomitant]
  8. CLOMIPRAMINE HCL [Concomitant]
  9. METFORMIN HCL [Concomitant]

REACTIONS (4)
  - ANGIOEDEMA [None]
  - DRUG INTERACTION [None]
  - HYPERSENSITIVITY [None]
  - LIP SWELLING [None]
